FAERS Safety Report 6772141-5 (Version None)
Quarter: 2010Q2

REPORT INFORMATION
  Report Type: 
  Country: None (occurrence: None)
  Receive Date: 20100616
  Receipt Date: 20100608
  Transmission Date: 20101027
  Serious: Yes (Death)
  Sender: FDA-Public Use
  Company Number: B0660842A

PATIENT
  Sex: Female

DRUGS (1)
  1. ARIXTRA [Suspect]
     Indication: DRUG USE FOR UNKNOWN INDICATION
     Dosage: 2.5MG PER DAY
     Route: 042
     Dates: start: 20100501, end: 20100501

REACTIONS (3)
  - HAEMATOCRIT DECREASED [None]
  - HAEMATOMA [None]
  - RESPIRATORY FAILURE [None]
